FAERS Safety Report 7694271-6 (Version None)
Quarter: 2011Q3

REPORT INFORMATION
  Report Type: 
  Country: None (occurrence: None)
  Receive Date: 20110819
  Receipt Date: 20110818
  Transmission Date: 20111222
  Serious: Yes (Other)
  Sender: FDA-Public Use
  Company Number: FR-GLAXOSMITHKLINE-B0737538A

PATIENT
  Sex: Female

DRUGS (1)
  1. ROPINIROLE HYDROCHLORIDE [Suspect]
     Indication: RESTLESS LEGS SYNDROME
     Dosage: 1MG PER DAY
     Route: 048

REACTIONS (3)
  - LYMPHOMA [None]
  - ABDOMINAL PAIN [None]
  - INFLAMMATION [None]
